FAERS Safety Report 7412303-7 (Version None)
Quarter: 2011Q2

REPORT INFORMATION
  Report Type: 
  Country: None (occurrence: None)
  Receive Date: 20110413
  Receipt Date: 20110404
  Transmission Date: 20111010
  Serious: Yes (Hospitalization, Other)
  Sender: FDA-Public Use
  Company Number: JP-ROCHE-750847

PATIENT
  Age: 31 Year
  Sex: Male

DRUGS (14)
  1. VALGANCICLOVIR [Suspect]
     Route: 048
     Dates: start: 20090418, end: 20090418
  2. PREZISTA [Suspect]
     Indication: HIV INFECTION
     Route: 048
     Dates: start: 20090424
  3. ISENTRESS [Concomitant]
     Route: 048
     Dates: start: 20090430
  4. VALGANCICLOVIR [Suspect]
     Route: 048
     Dates: start: 20090317, end: 20090331
  5. TRUVADA [Suspect]
     Indication: HIV INFECTION
     Dosage: 1 TABLET DAILY.
     Route: 048
     Dates: start: 20090205, end: 20090209
  6. CLARITHROMYCIN [Concomitant]
     Route: 048
     Dates: start: 20090516
  7. BENAMBAX [Concomitant]
     Route: 055
     Dates: start: 20090602
  8. VALGANCICLOVIR [Suspect]
     Route: 048
     Dates: start: 20090417, end: 20090417
  9. VALGANCICLOVIR [Suspect]
     Route: 048
     Dates: start: 20090419, end: 20090918
  10. NORVIR [Suspect]
     Indication: HIV INFECTION
     Route: 048
     Dates: start: 20090424
  11. MYCOBUTIN [Concomitant]
     Route: 048
     Dates: start: 20090516
  12. INDAPAMIDE [Concomitant]
     Route: 048
     Dates: start: 20090814
  13. ETHAMBUTOL HYDROCHLORIDE [Concomitant]
     Route: 048
     Dates: start: 20090516, end: 20090717
  14. INDAPAMIDE [Concomitant]
     Route: 048
     Dates: start: 20090717, end: 20090813

REACTIONS (6)
  - ATYPICAL MYCOBACTERIAL INFECTION [None]
  - GASTRIC ULCER [None]
  - RASH [None]
  - BLOOD URIC ACID INCREASED [None]
  - BLOOD TRIGLYCERIDES INCREASED [None]
  - CYTOMEGALOVIRUS CHORIORETINITIS [None]
